FAERS Safety Report 12726376 (Version 1)
Quarter: 2016Q3

REPORT INFORMATION
  Report Type: Spontaneous
  Country: US (occurrence: US)
  Receive Date: 20160906
  Receipt Date: 20160906
  Transmission Date: 20161109
  Serious: No
  Sender: FDA-Public Use
  Company Number: None

PATIENT
  Age: 5 Year
  Sex: Male
  Weight: 20.7 kg

DRUGS (2)
  1. MONTELUKAST [Suspect]
     Active Substance: MONTELUKAST SODIUM
     Indication: MULTIPLE ALLERGIES
     Route: 048
     Dates: start: 20160322, end: 20160501
  2. MONTELUKAST [Suspect]
     Active Substance: MONTELUKAST SODIUM
     Indication: DYSPNOEA
     Route: 048
     Dates: start: 20160322, end: 20160501

REACTIONS (12)
  - Anxiety [None]
  - Psychotic disorder [None]
  - Aggression [None]
  - Depressed mood [None]
  - Suicidal ideation [None]
  - Anhedonia [None]
  - Sneezing [None]
  - Anger [None]
  - Nightmare [None]
  - Homicidal ideation [None]
  - Abdominal pain upper [None]
  - Restlessness [None]

NARRATIVE: CASE EVENT DATE: 20160419
